FAERS Safety Report 6804941-7 (Version None)
Quarter: 2010Q2

REPORT INFORMATION
  Report Type: 
  Country: None (occurrence: None)
  Receive Date: 20100628
  Receipt Date: 20070716
  Transmission Date: 20101027
  Serious: Yes (Other)
  Sender: FDA-Public Use
  Company Number: US-PFIZER INC-2007058530

PATIENT
  Age: 34 Year
  Sex: Female
  Weight: 61.2 kg

DRUGS (1)
  1. GEODON [Suspect]
     Indication: DEPRESSION

REACTIONS (1)
  - VISUAL IMPAIRMENT [None]
